FAERS Safety Report 8611535-X (Version None)
Quarter: 2012Q3

REPORT INFORMATION
  Report Type: 
  Country: None (occurrence: None)
  Receive Date: 20120809
  Receipt Date: 20120725
  Transmission Date: 20120928
  Serious: Yes (Death)
  Sender: FDA-Public Use
  Company Number: 2012MA009099

PATIENT
  Age: 20 Year
  Sex: Female

DRUGS (5)
  1. BENZODIAZEPINES [Suspect]
     Indication: INTENTIONAL OVERDOSE
     Dosage: PO
     Route: 048
  2. KADIAN [Suspect]
     Indication: INTENTIONAL OVERDOSE
     Dosage: PO
     Route: 048
  3. DIAZEPAM [Suspect]
     Indication: INTENTIONAL OVERDOSE
     Dosage: PO
     Route: 048
  4. VENLAFAXINE HYDROCHLORIDE [Suspect]
     Indication: INTENTIONAL OVERDOSE
     Dosage: PO
     Route: 048
  5. MARIJUANA [Suspect]
     Indication: INTENTIONAL OVERDOSE
     Dosage: PO
     Route: 048

REACTIONS (2)
  - OVERDOSE [None]
  - TOXICITY TO VARIOUS AGENTS [None]
